FAERS Safety Report 4508959-9 (Version None)
Quarter: 2004Q4

REPORT INFORMATION
  Report Type: 
  Country: None (occurrence: None)
  Receive Date: 20041123
  Receipt Date: 20041111
  Transmission Date: 20050328
  Serious: Yes (Death, Hospitalization)
  Sender: FDA-Public Use
  Company Number: PHHO2004US16008

PATIENT
  Age: 65 Year
  Sex: Male

DRUGS (4)
  1. IMATINIB VS PLACEBO [Suspect]
     Indication: PROSTATE CANCER
     Dosage: 600 MG, QD
     Route: 048
     Dates: start: 20040816, end: 20041022
  2. TAXOTERE [Suspect]
     Indication: PROSTATE CANCER
     Dosage: 30 MG/M2, QW
     Route: 042
     Dates: start: 20040816, end: 20041018
  3. PEPCID [Concomitant]
  4. LOVENOX [Concomitant]

REACTIONS (7)
  - CHEST TUBE INSERTION [None]
  - LUNG INFILTRATION [None]
  - PNEUMONITIS [None]
  - PNEUMOTHORAX [None]
  - PULMONARY HYPERTENSION [None]
  - RESPIRATORY DISTRESS [None]
  - TRICUSPID VALVE INCOMPETENCE [None]
